FAERS Safety Report 10620163 (Version 2)
Quarter: 2014Q4

REPORT INFORMATION
  Report Type: Spontaneous
  Country: JP (occurrence: None)
  Receive Date: 20141128
  Receipt Date: 20141205
  Transmission Date: 20150529
  Serious: Yes (Hospitalization, Other)
  Sender: FDA-Public Use
  Company Number: JP-017830

PATIENT
  Age: 88 Year
  Sex: Male
  Weight: 60 kg

DRUGS (10)
  1. PROSTAL /00093602/ [Concomitant]
  2. DEGARELIX (GONAX) (240 MG, 80MG) [Suspect]
     Active Substance: DEGARELIX
     Indication: HORMONE-REFRACTORY PROSTATE CANCER
     Route: 058
     Dates: start: 20131106, end: 20131106
  3. XTANDI [Suspect]
     Active Substance: ENZALUTAMIDE
     Indication: HORMONE-REFRACTORY PROSTATE CANCER
     Route: 048
     Dates: start: 20140702, end: 20140715
  4. ARICEPT [Concomitant]
     Active Substance: DONEPEZIL HYDROCHLORIDE
  5. RANMARK [Concomitant]
     Active Substance: DENOSUMAB
  6. CALCIUM COMPOUNDS [Concomitant]
  7. AMIKACIN SULFATE. [Concomitant]
     Active Substance: AMIKACIN SULFATE
  8. HARNAL [Suspect]
     Active Substance: TAMSULOSIN HYDROCHLORIDE
     Indication: BENIGN PROSTATIC HYPERPLASIA
     Route: 048
     Dates: start: 20070118
  9. DECADRON [Concomitant]
     Active Substance: DEXAMETHASONE
  10. BAYASPIRIN [Concomitant]
     Active Substance: ASPIRIN

REACTIONS (18)
  - Malaise [None]
  - Condition aggravated [None]
  - Metastases to bone [None]
  - Respiratory tract infection [None]
  - White blood cell count increased [None]
  - Neutrophil count increased [None]
  - Prostatic specific antigen increased [None]
  - Metastases to adrenals [None]
  - Toxic skin eruption [None]
  - Incorrect dose administered [None]
  - Prostate cancer [None]
  - Haemoglobin decreased [None]
  - Drug eruption [None]
  - Blood sodium decreased [None]
  - Accidental underdose [None]
  - C-reactive protein increased [None]
  - Urinary tract infection [None]
  - Blood lactate dehydrogenase increased [None]

NARRATIVE: CASE EVENT DATE: 201407
